FAERS Safety Report 9473544 (Version 1)
Quarter: 2013Q3

REPORT INFORMATION
  Report Type: Spontaneous
  Country: GB (occurrence: GB)
  Receive Date: 20130823
  Receipt Date: 20130823
  Transmission Date: 20140515
  Serious: Yes (Life-Threatening)
  Sender: FDA-Public Use
  Company Number: GB-ALLERGAN-1312733US

PATIENT
  Age: 86 Year
  Sex: Male

DRUGS (10)
  1. GANFORT [Suspect]
     Indication: PRODUCT USED FOR UNKNOWN INDICATION
     Dosage: 1 GTT, QD
     Route: 047
     Dates: start: 20130806, end: 20130808
  2. ALLOPURINOL [Concomitant]
  3. ATENOLOL [Concomitant]
  4. BRINZOLAMIDE [Concomitant]
  5. CORACTEN [Concomitant]
  6. LISINOPRIL [Concomitant]
  7. LUMIGAN [Concomitant]
  8. NITROFURANTOIN [Concomitant]
  9. SIMVASTATIN [Concomitant]
  10. ASPIRIN (E.C.) [Concomitant]

REACTIONS (1)
  - Dyspnoea [Recovered/Resolved]
